FAERS Safety Report 12649290 (Version 1)
Quarter: 2016Q3

REPORT INFORMATION
  Report Type: Spontaneous
  Country: FR (occurrence: FR)
  Receive Date: 20160812
  Receipt Date: 20160812
  Transmission Date: 20161109
  Serious: Yes (Hospitalization)
  Sender: FDA-Public Use
  Company Number: FR-BAYER-2016-151592

PATIENT
  Age: 65 Year
  Sex: Male

DRUGS (10)
  1. CIFLOX [Suspect]
     Active Substance: CIPROFLOXACIN
     Indication: ABSCESS
     Dosage: UNK
     Dates: start: 20131010
  2. INEXIUM [Concomitant]
     Active Substance: ESOMEPRAZOLE
     Dosage: 20 MG, QD
  3. NORMIX [Concomitant]
     Active Substance: RIFAXIMIN
     Dosage: 2 DF, TID
  4. CIFLOX [Suspect]
     Active Substance: CIPROFLOXACIN
     Indication: ABSCESS
     Dosage: UNK
     Dates: start: 20131023, end: 20131106
  5. CIFLOX [Suspect]
     Active Substance: CIPROFLOXACIN
     Indication: ABSCESS
     Dosage: UNK
     Route: 042
     Dates: start: 20131115, end: 201312
  6. MEROPENEM. [Concomitant]
     Active Substance: MEROPENEM
     Indication: ABSCESS
     Dosage: UNK
     Route: 042
     Dates: start: 20131115
  7. LAROSCORBINE [Concomitant]
     Active Substance: ASCORBIC ACID
     Dosage: 500 MG, BID
  8. CORGARD [Concomitant]
     Active Substance: NADOLOL
     Dosage: 80 MG, QD
  9. DUPHALAC [GALACTOSE,LACTOSE,LACTULOSE] [Concomitant]
     Dosage: 1 DF, TID
  10. KARDEGIC [Concomitant]
     Active Substance: ASPIRIN LYSINE
     Dosage: 75 MG, QD

REACTIONS (2)
  - Hepatitis [Recovered/Resolved]
  - Hepatitis cholestatic [Recovered/Resolved]

NARRATIVE: CASE EVENT DATE: 20131202
